FAERS Safety Report 5904164-X (Version None)
Quarter: 2008Q4

REPORT INFORMATION
  Report Type: 
  Country: None (occurrence: None)
  Receive Date: 20081001
  Receipt Date: 20080923
  Transmission Date: 20090506
  Serious: Yes (Hospitalization, Other)
  Sender: FDA-Public Use
  Company Number: US-RANBAXY-2008US-18193

PATIENT

DRUGS (10)
  1. TRIAMCINOLONE [Suspect]
     Indication: DRUG USE FOR UNKNOWN INDICATION
     Dosage: UNK, UNK
     Dates: start: 20070224
  2. METHOTREXATE [Suspect]
     Indication: DRUG USE FOR UNKNOWN INDICATION
     Dosage: 75 MG, UNK
     Route: 048
     Dates: start: 20050424
  3. ACYCLOVIR [Concomitant]
     Indication: DRUG USE FOR UNKNOWN INDICATION
     Dosage: 5 MG, QD
     Dates: start: 20051101
  4. DESLORATADINE [Concomitant]
     Indication: DERMATITIS ALLERGIC
     Dosage: 2.5 ML
     Dates: start: 20080401
  5. HYDROCORTISONE [Concomitant]
     Indication: DERMATITIS ALLERGIC
     Dosage: 1.000000 %, UNK
     Dates: start: 20080401
  6. IRON [Concomitant]
     Indication: DRUG USE FOR UNKNOWN INDICATION
     Dosage: 5.000000 MG, UNK
     Dates: start: 20060301
  7. ACETAMINOPHEN [Concomitant]
     Indication: DRUG USE FOR UNKNOWN INDICATION
     Dosage: 250.000000 MG, UNK
     Dates: start: 20050201
  8. PREDNISOLONE [Concomitant]
     Indication: DRUG USE FOR UNKNOWN INDICATION
     Dosage: 10.000000 MG, UNK
     Dates: start: 20050401, end: 20060601
  9. PREDNISOLONE [Concomitant]
     Dosage: UNK
     Dates: start: 20061101
  10. STREOIDS [Concomitant]
     Indication: DRUG USE FOR UNKNOWN INDICATION
     Dates: start: 20050801

REACTIONS (2)
  - PYREXIA [None]
  - URINARY TRACT INFECTION VIRAL [None]
